FAERS Safety Report 9535535 (Version 2)
Quarter: 2013Q3

REPORT INFORMATION
  Report Type: Spontaneous
  Country: LU (occurrence: LU)
  Receive Date: 20130918
  Receipt Date: 20130926
  Transmission Date: 20140515
  Serious: Yes (Life-Threatening)
  Sender: FDA-Public Use
  Company Number: LU-ROCHE-1277812

PATIENT
  Age: 51 Year
  Sex: Male

DRUGS (1)
  1. MABTHERA [Suspect]
     Indication: POLYARTHRITIS
     Dosage: ON 21/JAN/2013. PATIENT RECIEVED LAST RITUXIMAB PERFUSION.
     Route: 065
     Dates: start: 20130107, end: 20130121

REACTIONS (1)
  - Prostate cancer [Not Recovered/Not Resolved]
